FAERS Safety Report 8907522 (Version 1)
Quarter: 2012Q4

REPORT INFORMATION
  Report Type: 
  Country: AT (occurrence: AT)
  Receive Date: 20121114
  Receipt Date: 20121114
  Transmission Date: 20130627
  Serious: Yes (Hospitalization)
  Sender: FDA-Public Use
  Company Number: AT-BIOGENIDEC-2012BI047964

PATIENT
  Sex: Female

DRUGS (2)
  1. AVONEX [Suspect]
     Indication: PRODUCT USED FOR UNKNOWN INDICATION
     Route: 030
  2. SERACTIL (DEXIBUPROFEN) [Concomitant]
     Route: 048

REACTIONS (3)
  - Diplopia [Recovered/Resolved]
  - Hypoaesthesia oral [Recovered/Resolved]
  - Influenza like illness [Unknown]
